FAERS Safety Report 6919813-7 (Version None)
Quarter: 2010Q3

REPORT INFORMATION
  Report Type: 
  Country: None (occurrence: None)
  Receive Date: 20100811
  Receipt Date: 20100805
  Transmission Date: 20110219
  Serious: Yes (Other)
  Sender: FDA-Public Use
  Company Number: IT-MILLENNIUM PHARMACEUTICALS, INC.-2010-04215

PATIENT

DRUGS (6)
  1. VELCADE [Suspect]
     Indication: MULTIPLE MYELOMA
     Dosage: 2.2 MG, UNK
     Route: 042
     Dates: start: 20100524, end: 20100614
  2. MYELOSTIM [Suspect]
     Indication: NEUTROPENIA
     Dosage: 1 DF, UNK
     Route: 058
     Dates: start: 20100603
  3. NATECAL [Concomitant]
  4. OMEPRAZOLE [Concomitant]
  5. KYTRIL [Concomitant]
  6. ZYLORIC                            /00003301/ [Concomitant]

REACTIONS (5)
  - ABDOMINAL PAIN [None]
  - ACUTE FEBRILE NEUTROPHILIC DERMATOSIS [None]
  - DIARRHOEA [None]
  - NAUSEA [None]
  - RETCHING [None]
